FAERS Safety Report 25980978 (Version 1)
Quarter: 2025Q4

REPORT INFORMATION
  Report Type: Spontaneous
  Country: US (occurrence: None)
  Receive Date: 20251030
  Receipt Date: 20251030
  Transmission Date: 20260117
  Serious: Yes (Hospitalization)
  Sender: FDA-CTU
  Company Number: None

PATIENT
  Sex: Female

DRUGS (2)
  1. RINVOQ [Suspect]
     Active Substance: UPADACITINIB
     Indication: Crohn^s disease
     Dosage: 45 MG DAILY ORAL
     Route: 048
     Dates: start: 20251008
  2. TYMLOS [Suspect]
     Active Substance: ABALOPARATIDE

REACTIONS (3)
  - Colitis [None]
  - Urinary tract infection [None]
  - Hip fracture [None]
